FAERS Safety Report 6011655-2 (Version None)
Quarter: 2008Q4

REPORT INFORMATION
  Report Type: 
  Country: None (occurrence: None)
  Receive Date: 20081218
  Receipt Date: 19860226
  Transmission Date: 20090506
  Serious: Yes (Death)
  Sender: FDA-Public Use
  Company Number: ZA-ROCHE-860101858001

PATIENT
  Age: 54 Year
  Sex: Male

DRUGS (1)
  1. INTERFERON ALFA-2A [Suspect]
     Indication: MULTIPLE MYELOMA
     Dosage: TOTAL CUMULATIVE DOSE: 108 MU. MAX DAILY DOSE: 6 MIU
     Route: 058
     Dates: start: 19850617, end: 19850713

REACTIONS (1)
  - MULTIPLE MYELOMA [None]
